FAERS Safety Report 7007661-1 (Version None)
Quarter: 2010Q3

REPORT INFORMATION
  Report Type: 
  Country: None (occurrence: None)
  Receive Date: 20100922
  Receipt Date: 20100914
  Transmission Date: 20110219
  Serious: Yes (Other)
  Sender: FDA-Public Use
  Company Number: GB-PFIZER INC-2010108778

PATIENT
  Age: 62 Year
  Sex: Male

DRUGS (1)
  1. LIPITOR [Suspect]
     Dosage: 10 MG, 3X/DAY, NIGHTLY

REACTIONS (8)
  - ARTHRALGIA [None]
  - BLOOD CHOLESTEROL INCREASED [None]
  - CYST RUPTURE [None]
  - JOINT SWELLING [None]
  - MUSCULOSKELETAL DISORDER [None]
  - OSTEOARTHRITIS [None]
  - TOOTHACHE [None]
  - WEIGHT INCREASED [None]
